FAERS Safety Report 25236006 (Version 2)
Quarter: 2025Q2

REPORT INFORMATION
  Report Type: Spontaneous
  Country: JP (occurrence: JP)
  Receive Date: 20250424
  Receipt Date: 20250625
  Transmission Date: 20250716
  Serious: Yes (Life-Threatening, Hospitalization)
  Sender: GUERBET
  Company Number: JP-GUERBET-JP-20200216

PATIENT
  Age: 77 Year
  Sex: Female

DRUGS (2)
  1. LIPIODOL [Suspect]
     Active Substance: ETHIODIZED OIL
     Indication: Lymphangiogram
     Route: 027
  2. SANDOSTATIN [Concomitant]
     Active Substance: OCTREOTIDE ACETATE
     Indication: Lymphatic fistula

REACTIONS (4)
  - Shock [Recovered/Resolved]
  - Cardiac tamponade [Recovered/Resolved]
  - Lymphatic fistula [Recovered/Resolved]
  - Product use in unapproved indication [Recovered/Resolved]
